FAERS Safety Report 9026510 (Version 1)
Quarter: 2013Q1

REPORT INFORMATION
  Report Type: Spontaneous
  Country: CA (occurrence: CA)
  Receive Date: 20130123
  Receipt Date: 20130123
  Transmission Date: 20140127
  Serious: Yes (Hospitalization, Other)
  Sender: FDA-Public Use
  Company Number: CA-JNJFOC-20120106482

PATIENT
  Age: 32 None
  Sex: Male
  Weight: 76 kg

DRUGS (3)
  1. REMICADE [Suspect]
     Indication: CROHN^S DISEASE
     Route: 042
     Dates: start: 2007
  2. REMICADE [Suspect]
     Indication: CROHN^S DISEASE
     Route: 042
     Dates: start: 2007
  3. PURINETHOL [Concomitant]

REACTIONS (9)
  - Decreased immune responsiveness [Unknown]
  - Acute tonsillitis [Recovering/Resolving]
  - Weight decreased [Recovering/Resolving]
  - Influenza [Recovering/Resolving]
  - Acute sinusitis [Recovering/Resolving]
  - Herpes zoster [Recovering/Resolving]
  - Crohn^s disease [Recovering/Resolving]
  - Gastroenteritis [Recovering/Resolving]
  - Infectious mononucleosis [Unknown]
